FAERS Safety Report 5974199-X (Version None)
Quarter: 2008Q4

REPORT INFORMATION
  Report Type: 
  Country: None (occurrence: None)
  Receive Date: 20081201
  Receipt Date: 20081125
  Transmission Date: 20090506
  Serious: Yes (Other)
  Sender: FDA-Public Use
  Company Number: US-PFIZER INC-2008057012

PATIENT
  Sex: Female
  Weight: 88.181 kg

DRUGS (2)
  1. CHANTIX [Suspect]
     Indication: SMOKING CESSATION THERAPY
     Dosage: TEXT:0.5 MG DAILY EVERYDAY TDD:0.5 MG
     Dates: start: 20080501, end: 20080501
  2. SYNTHROID [Concomitant]
     Indication: THYROID DISORDER

REACTIONS (6)
  - DIZZINESS [None]
  - FATIGUE [None]
  - HEADACHE [None]
  - IMPAIRED DRIVING ABILITY [None]
  - NAUSEA [None]
  - VISUAL IMPAIRMENT [None]
